FAERS Safety Report 24254536 (Version 1)
Quarter: 2024Q3

REPORT INFORMATION
  Report Type: Spontaneous
  Country: US (occurrence: US)
  Receive Date: 20240827
  Receipt Date: 20240827
  Transmission Date: 20241017
  Serious: Yes (Other)
  Sender: PFIZER
  Company Number: US-PFIZER INC-202400242272

PATIENT
  Age: 37 Year
  Sex: Female

DRUGS (3)
  1. OXBRYTA [Suspect]
     Active Substance: VOXELOTOR
     Dosage: 1500 MG, 1X/DAY
     Dates: start: 20200227
  2. DROXIA [HYDROXYCARBAMIDE] [Concomitant]
     Dosage: 800 MG, DAILY
  3. FOLIC ACID [Concomitant]
     Active Substance: FOLIC ACID
     Dosage: 1 MG

REACTIONS (2)
  - Anaemia [Unknown]
  - Iron overload [Unknown]
